FAERS Safety Report 10368788 (Version 1)
Quarter: 2014Q3

REPORT INFORMATION
  Report Type: Spontaneous
  Country: RO (occurrence: RO)
  Receive Date: 20140807
  Receipt Date: 20140807
  Transmission Date: 20150326
  Serious: Yes (Death, Other)
  Sender: FDA-Public Use
  Company Number: RO-MYLAN-2014M1000578

PATIENT

DRUGS (1)
  1. METHADONE [Suspect]
     Active Substance: METHADONE HYDROCHLORIDE
     Route: 042

REACTIONS (5)
  - Acute pulmonary oedema [Fatal]
  - Pulmonary hypertension [Unknown]
  - Toxicity to various agents [Fatal]
  - Cardiopulmonary failure [Fatal]
  - Incorrect route of drug administration [Fatal]
